FAERS Safety Report 6313990-7 (Version None)
Quarter: 2009Q3

REPORT INFORMATION
  Report Type: 
  Country: None (occurrence: None)
  Receive Date: 20090818
  Receipt Date: 20090810
  Transmission Date: 20100115
  Serious: Yes (Hospitalization, Other)
  Sender: FDA-Public Use
  Company Number: PHHY2009FR23470

PATIENT
  Age: 78 Year
  Sex: Male
  Weight: 80 kg

DRUGS (5)
  1. TAREG [Suspect]
     Indication: HYPERTENSION
     Dosage: 160 MG, QD
     Route: 048
     Dates: end: 20090515
  2. SINTROM [Suspect]
     Dosage: UNK
  3. ESOMEPRAZOLE [Suspect]
     Dosage: 1 DF DAILY
  4. CRESTOR [Suspect]
     Dosage: 1 DF DAILY
  5. ANTIVITAMIN-K [Concomitant]

REACTIONS (1)
  - URTICARIA [None]
